FAERS Safety Report 6808507-4 (Version None)
Quarter: 2010Q2

REPORT INFORMATION
  Report Type: 
  Country: None (occurrence: None)
  Receive Date: 20100629
  Receipt Date: 20090629
  Transmission Date: 20101027
  Serious: No
  Sender: FDA-Public Use
  Company Number: US-PFIZER INC-2009234175

PATIENT
  Sex: Male

DRUGS (3)
  1. XANAX [Suspect]
     Dosage: 2 MG/DAY
  2. NEURONTIN [Suspect]
  3. AMOXICILLIN [Suspect]

REACTIONS (1)
  - DRUG SCREEN POSITIVE [None]
